FAERS Safety Report 8600027-X (Version None)
Quarter: 2012Q3

REPORT INFORMATION
  Report Type: 
  Country: None (occurrence: None)
  Receive Date: 20120816
  Receipt Date: 20120807
  Transmission Date: 20120928
  Serious: Yes (Hospitalization, Other)
  Sender: FDA-Public Use
  Company Number: CHPA2012US013468

PATIENT
  Age: 81 Year
  Sex: Female

DRUGS (7)
  1. ATENOLOL [Concomitant]
     Indication: PALPITATIONS
     Dosage: 25 MG, BID
  2. XANAX [Concomitant]
     Indication: ANXIETY
     Dosage: 0.5MG, 3-4 TIMES PER DAY
     Route: 048
  3. EXCEDRIN EXTRA STRENGTH CAPLETS [Suspect]
     Indication: PAIN
     Dosage: ^AS DIRECTED^, ^SINCE IT CAME OUT^
     Route: 048
  4. TOFRANIL [Concomitant]
     Indication: ANXIETY
     Dosage: UNK DF, QN
  5. BIAXIN [Concomitant]
     Indication: ANTIBIOTIC THERAPY
     Dosage: UNK, UNK
  6. EXCEDRIN EXTRA STRENGTH CAPLETS [Suspect]
     Dosage: 2-3 DF, PRN, ^SINCE IT CAME OUT^
     Route: 048
  7. LIPITOR [Suspect]
     Indication: BLOOD CHOLESTEROL INCREASED
     Dosage: 1 DF

REACTIONS (9)
  - TENDONITIS [None]
  - FALL [None]
  - MUSCLE TIGHTNESS [None]
  - DIVERTICULITIS [None]
  - UPPER LIMB FRACTURE [None]
  - PAIN [None]
  - MUSCLE STRAIN [None]
  - BLOOD CHOLESTEROL INCREASED [None]
  - MOVEMENT DISORDER [None]
